FAERS Safety Report 7335096-0 (Version None)
Quarter: 2011Q1

REPORT INFORMATION
  Report Type: 
  Country: None (occurrence: None)
  Receive Date: 20110307
  Receipt Date: 20100804
  Transmission Date: 20110831
  Serious: Yes (Other)
  Sender: FDA-Public Use
  Company Number: US-BAYER-201023202NA

PATIENT
  Sex: Female
  Weight: 48.073 kg

DRUGS (22)
  1. YAZ [Suspect]
     Indication: MENOMETRORRHAGIA
     Dosage: 1 DF, QD
     Route: 048
     Dates: start: 20081030, end: 20090712
  2. SUMATRIPTAN AND NAPROXEN SODIUM [Concomitant]
     Indication: HEADACHE
     Dosage: 1 DF, PRN
     Dates: start: 20090201
  3. LOVAZA [Concomitant]
  4. AMOXICILLIN [Concomitant]
     Dosage: 500 MG, TID
     Dates: start: 20090317, end: 20090301
  5. LEXAPRO [Concomitant]
     Indication: DEPRESSION
     Dosage: 20 MG, QD
  6. PROMETHAZINE [Concomitant]
     Indication: NAUSEA
     Dosage: 12.5 MG, Q6H PRN
  7. CLONAZEPAM [Concomitant]
     Indication: MUSCLE TWITCHING
     Dosage: 0.125 MG, Q8H PRN
  8. CYMBALTA [Concomitant]
     Dosage: 30 MG, (3 CAPS DAILY)
     Route: 048
  9. CELEBREX [Concomitant]
     Dosage: 200 MG, QD
  10. VITAMIN B COMPLEX CAP [Concomitant]
  11. METHYLPREDNISOLONE [Concomitant]
     Dosage: 4 MG, UNK
  12. PROPRANOLOL [Concomitant]
     Dosage: 10 MG, TID
  13. AZITHROMYCIN [Concomitant]
     Dosage: 500 MG, QD
     Dates: start: 20090123
  14. ACTONEL [Concomitant]
     Dosage: 75 MG, 2 TABS MONTHLY FOR 2 CONSECUTIVE DAYS/MONTH
     Route: 048
  15. AVELOX [Concomitant]
     Dosage: 400 MG, QD
     Dates: start: 20090128, end: 20090201
  16. PROMETHAZINE [Concomitant]
     Indication: HEADACHE
  17. ASCORBIC ACID [Concomitant]
     Dosage: UNK UNK, PRN
  18. ANTIINFLAMMATORY/ANTIRHEUMATIC NON-STEROIDS [Concomitant]
     Dosage: UNK, PRN
  19. NAPROXEN [Concomitant]
     Indication: HEADACHE
     Dosage: 1 DF, PRN
     Dates: start: 20090201
  20. KEPPRA [Concomitant]
     Indication: MIGRAINE PROPHYLAXIS
     Dosage: 500 MG, HS
  21. TOPAMAX [Concomitant]
     Indication: MIGRAINE PROPHYLAXIS
     Dosage: 500 MG, BID
  22. IMITREX [Concomitant]
     Indication: HEADACHE
     Dosage: 100 MG, UNK

REACTIONS (9)
  - TRANSIENT ISCHAEMIC ATTACK [None]
  - EMBOLIC CEREBRAL INFARCTION [None]
  - EMOTIONAL DISTRESS [None]
  - GAIT DISTURBANCE [None]
  - VISUAL IMPAIRMENT [None]
  - FALL [None]
  - MUSCULAR WEAKNESS [None]
  - PHOTOPSIA [None]
  - HYPOAESTHESIA [None]
